FAERS Safety Report 23964533 (Version 1)
Quarter: 2024Q2

REPORT INFORMATION
  Report Type: Spontaneous
  Country: US (occurrence: US)
  Receive Date: 20240612
  Receipt Date: 20240612
  Transmission Date: 20240716
  Serious: Yes (Hospitalization, Other)
  Sender: FDA-Public Use
  Company Number: US-BRISTOL-MYERS SQUIBB COMPANY-2024-092412

PATIENT
  Age: 81 Year
  Sex: Male
  Weight: 56.25 kg

DRUGS (1)
  1. POMALYST [Suspect]
     Active Substance: POMALIDOMIDE
     Indication: Plasma cell myeloma
     Dosage: 21 DAYS ON THEN 7 DAYS OFF
     Route: 048

REACTIONS (4)
  - Neutropenia [Not Recovered/Not Resolved]
  - Escherichia bacteraemia [Unknown]
  - Anaemia [Unknown]
  - Thrombocytopenia [Unknown]
